FAERS Safety Report 20525117 (Version 2)
Quarter: 2022Q1

REPORT INFORMATION
  Report Type: Spontaneous
  Country: HU (occurrence: HU)
  Receive Date: 20220228
  Receipt Date: 20220328
  Transmission Date: 20220423
  Serious: Yes (Hospitalization, Other)
  Sender: FDA-Public Use
  Company Number: HU-ASTELLAS-2022US007124

PATIENT
  Age: 67 Year
  Sex: Male

DRUGS (4)
  1. PROGRAF [Suspect]
     Active Substance: TACROLIMUS
     Indication: Heart transplant
     Dosage: UNK UNK, TWICE DAILY (TROUGH 10-15NG/ML IN FIRST 3 MONTHS)
     Route: 065
     Dates: start: 20200116, end: 20200429
  2. PROGRAF [Suspect]
     Active Substance: TACROLIMUS
     Dosage: UNK UNK, TWICE DAILY (TARGET TROUGH 8-10 NG/ML)
     Route: 065
     Dates: start: 20200429
  3. METHYLPREDNISOLONE [Suspect]
     Active Substance: METHYLPREDNISOLONE
     Indication: Heart transplant
     Route: 065
     Dates: start: 2020
  4. MYCOPHENOLIC ACID [Suspect]
     Active Substance: MYCOPHENOLIC ACID
     Indication: Heart transplant
     Route: 065
     Dates: start: 2020

REACTIONS (4)
  - Aortic pseudoaneurysm [Recovered/Resolved]
  - Infective aneurysm [Recovered/Resolved]
  - Pseudomonas infection [Recovered/Resolved]
  - Infective aortitis [Recovered/Resolved]

NARRATIVE: CASE EVENT DATE: 20200604
